FAERS Safety Report 10600950 (Version 2)
Quarter: 2014Q4

REPORT INFORMATION
  Report Type: Spontaneous
  Country: US (occurrence: US)
  Receive Date: 20141124
  Receipt Date: 20141124
  Transmission Date: 20150529
  Serious: Yes (Hospitalization)
  Sender: FDA-Public Use
  Company Number: US-CIPLA LTD.-2014US02027

PATIENT
  Age: 40 Year
  Sex: Female

DRUGS (1)
  1. AMLODIPINE [Suspect]
     Active Substance: AMLODIPINE BESYLATE
     Dosage: 1000 MG (100 TABLETS OF 10 MG), ONCE

REACTIONS (7)
  - Suicide attempt [Unknown]
  - Vomiting [Unknown]
  - Pneumonia [Recovered/Resolved]
  - Acute respiratory distress syndrome [Recovered/Resolved]
  - Hypotension [Unknown]
  - Intentional overdose [Unknown]
  - Ileus [Recovered/Resolved]
